FAERS Safety Report 9351090 (Version 1)
Quarter: 2013Q2

REPORT INFORMATION
  Report Type: Spontaneous
  Country: US (occurrence: US)
  Receive Date: 20130617
  Receipt Date: 20130617
  Transmission Date: 20140414
  Serious: No
  Sender: FDA-Public Use
  Company Number: US-B.I. PHARMACEUTICALS,INC./RIDGEFIELD-2013-BI-16475BP

PATIENT
  Sex: Male

DRUGS (6)
  1. COMBIVENT [Suspect]
     Indication: CHRONIC OBSTRUCTIVE PULMONARY DISEASE
     Dosage: STRENGTH: 20 MCG / 100 MCG;
     Route: 055
     Dates: start: 201305, end: 20130520
  2. COMBIVENT [Suspect]
     Indication: CHRONIC OBSTRUCTIVE PULMONARY DISEASE
     Dosage: STRENGTH: 18 MCG / 103 MCG;
     Route: 055
     Dates: end: 201305
  3. SYMBICORT [Concomitant]
  4. ALBUTEROL [Concomitant]
  5. IPRATROPIUM [Concomitant]
  6. ALBUTEROL ER [Concomitant]

REACTIONS (6)
  - Sputum retention [Recovered/Resolved]
  - Drug ineffective [Recovered/Resolved]
  - Sputum purulent [Recovered/Resolved]
  - Pulmonary function test decreased [Recovered/Resolved]
  - Overdose [Unknown]
  - Overdose [Unknown]
